APPROVED DRUG PRODUCT: KLARON
Active Ingredient: SULFACETAMIDE SODIUM
Strength: 10%
Dosage Form/Route: LOTION;TOPICAL
Application: N019931 | Product #001 | TE Code: AB
Applicant: BAUSCH HEALTH US LLC
Approved: Dec 23, 1996 | RLD: Yes | RS: Yes | Type: RX